FAERS Safety Report 7744885 (Version 11)
Quarter: 2013Q1

REPORT INFORMATION
  Report Type: Spontaneous
  Country: FR (occurrence: FR)
  Receive Date: 20101230
  Receipt Date: 20130226
  Transmission Date: 20140127
  Serious: Yes (Other)
  Sender: FDA-Public Use
  Company Number: FR-PFIZER INC-2010179430

PATIENT
  Age: 45 Year
  Sex: Female
  Weight: 71 kg

DRUGS (16)
  1. CHAMPIX [Suspect]
     Indication: SMOKING CESSATION THERAPY
     Dosage: 0.5 MG, 1X/DAY
     Dates: start: 20100718, end: 201007
  2. CHAMPIX [Suspect]
     Dosage: 1 MG, 2X/DAY
     Route: 048
     Dates: start: 201007, end: 20100809
  3. ABUFENE [Concomitant]
  4. NAFTIDROFURYL [Concomitant]
  5. KARDEGIC [Concomitant]
  6. PLAVIX [Concomitant]
  7. LEVOTHYROXINE [Concomitant]
  8. JANUVIA [Concomitant]
     Dosage: UNK
  9. LANTUS SOLOSTAR [Concomitant]
     Dosage: UNK
  10. NOVORAPID FLEXPEN [Concomitant]
     Dosage: UNK
  11. TARDYFERON [Concomitant]
  12. AERIUS [Concomitant]
  13. FONGAREX [Concomitant]
  14. FONGAMIL [Concomitant]
  15. COLOPEG [Concomitant]
  16. MACROGOL [Concomitant]

REACTIONS (15)
  - Cardiac failure [Unknown]
  - Diabetic ketoacidosis [Recovered/Resolved]
  - Generalised oedema [Recovering/Resolving]
  - Diabetes mellitus [Recovered/Resolved]
  - Weight increased [Recovered/Resolved]
  - Tunnel vision [Unknown]
  - Anaemia [Recovering/Resolving]
  - Leukocytosis [Recovering/Resolving]
  - Inflammation [Unknown]
  - Thrombocytosis [Unknown]
  - Angiopathy [Unknown]
  - Abdominal pain [Unknown]
  - Constipation [Unknown]
  - Myalgia [Recovered/Resolved]
  - Pain [Recovered/Resolved]
